FAERS Safety Report 12625243 (Version 1)
Quarter: 2016Q3

REPORT INFORMATION
  Report Type: Report from Study
  Country: BR (occurrence: BR)
  Receive Date: 20160805
  Receipt Date: 20160805
  Transmission Date: 20161109
  Serious: Yes (Other)
  Sender: FDA-Public Use
  Company Number: BR-JNJFOC-20160711150

PATIENT
  Sex: Female

DRUGS (6)
  1. VENALOT [Concomitant]
     Active Substance: COUMARIN\TROXERUTIN
     Route: 065
  2. IMBRUVICA [Suspect]
     Active Substance: IBRUTINIB
     Indication: B-CELL SMALL LYMPHOCYTIC LYMPHOMA
     Route: 048
     Dates: start: 20160531
  3. IMBRUVICA [Suspect]
     Active Substance: IBRUTINIB
     Indication: CHRONIC LYMPHOCYTIC LEUKAEMIA
     Route: 048
     Dates: start: 20160531
  4. BENICAR [Concomitant]
     Active Substance: OLMESARTAN MEDOXOMIL
     Route: 065
  5. OLCADIL [Concomitant]
     Active Substance: CLOXAZOLAM
     Route: 065
  6. ZYLORIC [Concomitant]
     Active Substance: ALLOPURINOL
     Route: 065

REACTIONS (7)
  - Myalgia [Unknown]
  - White blood cell count increased [Unknown]
  - Visual impairment [Not Recovered/Not Resolved]
  - Skin irritation [Recovering/Resolving]
  - Skin disorder [Unknown]
  - Pruritus [Recovering/Resolving]
  - Vision blurred [None]
